FAERS Safety Report 8429079-7 (Version None)
Quarter: 2012Q2

REPORT INFORMATION
  Report Type: 
  Country: None (occurrence: None)
  Receive Date: 20120612
  Receipt Date: 20120531
  Transmission Date: 20120825
  Serious: Yes (Other)
  Sender: FDA-Public Use
  Company Number: US-JNJFOC-20120506760

PATIENT
  Sex: Female
  Weight: 89.36 kg

DRUGS (20)
  1. REMICADE [Suspect]
     Route: 042
     Dates: start: 20120504
  2. VITAMIN B-12 [Concomitant]
     Indication: MEDICAL DIET
     Route: 065
  3. DILTIAZEM [Concomitant]
     Indication: CARDIAC DISORDER
     Route: 065
  4. LYRICA [Concomitant]
     Indication: DIABETES MELLITUS
     Route: 065
  5. CYMBALTA [Suspect]
     Indication: PAIN
     Route: 048
  6. LOSARTAN [Concomitant]
     Indication: CARDIAC DISORDER
     Route: 065
  7. WARFARIN SODIUM [Concomitant]
     Indication: CARDIAC DISORDER
     Dosage: 5 ON ODD DAYS; 6 ON EVEN DAYS.
     Route: 065
  8. ASCORBIC ACID [Concomitant]
     Indication: MEDICAL DIET
     Route: 065
  9. REMICADE [Suspect]
     Route: 042
     Dates: start: 20101001
  10. PREDNISONE [Concomitant]
     Indication: RHEUMATOID ARTHRITIS
     Dosage: ON SLIDING SCALE
     Route: 065
  11. FENOFIBRATE [Concomitant]
     Indication: BLOOD CHOLESTEROL
     Route: 065
  12. FISH OIL [Concomitant]
     Indication: MEDICAL DIET
     Dosage: 1000MG/300 OMEGA 3
     Route: 065
  13. LEVONOR [Concomitant]
     Indication: DIABETES MELLITUS
     Route: 048
  14. LIVALO [Concomitant]
     Indication: BLOOD CHOLESTEROL
     Route: 065
  15. HYDROCODONE BITARTRATE + ACETAMINOPHEN [Concomitant]
     Indication: ARTHRALGIA
     Dosage: 5-500
     Route: 065
  16. METFORMIN HCL [Concomitant]
     Indication: DIABETES MELLITUS
     Dosage: ONE IN MORNING AND ONE IN EVENING
     Route: 065
  17. FUROSEMIDE [Concomitant]
     Indication: CARDIAC DISORDER
     Route: 065
  18. REMICADE [Suspect]
     Indication: RHEUMATOID ARTHRITIS
     Route: 042
  19. ALL OTHER THERAPEUTIC PRODUCT [Concomitant]
     Dosage: OVER 50
     Route: 065
  20. VITAMIN D [Concomitant]
     Indication: MEDICAL DIET
     Route: 065

REACTIONS (13)
  - CLOSTRIDIAL INFECTION [None]
  - BLOOD GLUCOSE INCREASED [None]
  - TOOTH EXTRACTION [None]
  - SURGERY [None]
  - THROMBOPHLEBITIS [None]
  - URINARY TRACT INFECTION [None]
  - DRUG INEFFECTIVE [None]
  - ONYCHOMYCOSIS [None]
  - FATIGUE [None]
  - PANCREATITIS [None]
  - WEIGHT INCREASED [None]
  - CARPAL TUNNEL SYNDROME [None]
  - PNEUMONIA [None]
